FAERS Safety Report 10253044 (Version 1)
Quarter: 2014Q2

REPORT INFORMATION
  Report Type: Spontaneous
  Country: US (occurrence: None)
  Receive Date: 20140619
  Receipt Date: 20140619
  Transmission Date: 20141212
  Serious: Yes (Death, Life-Threatening)
  Sender: FDA-Public Use
  Company Number: None

PATIENT
  Age: 71 Year
  Sex: Female
  Weight: 91 kg

DRUGS (12)
  1. RIVAROXABAN [Suspect]
     Indication: ATRIAL FIBRILLATION
     Dosage: 1 TABLET QD ORAL
     Route: 048
     Dates: start: 20140319, end: 20140330
  2. DILTIAZEM [Concomitant]
  3. DIGOXIN [Concomitant]
  4. PREDNISONE [Concomitant]
  5. RANITIDINE [Concomitant]
  6. PANTOPRAZOLE [Concomitant]
  7. ADVAIR [Concomitant]
  8. AMLODIPINE [Concomitant]
  9. ESCITALOPRAM [Concomitant]
  10. LEVOTHYROXINE [Concomitant]
  11. LETARIS [Concomitant]
  12. PRAVASTATIN [Concomitant]

REACTIONS (5)
  - Renal impairment [None]
  - Anaemia [None]
  - Unresponsive to stimuli [None]
  - Ill-defined disorder [None]
  - Haematemesis [None]
